FAERS Safety Report 8817391 (Version 4)
Quarter: 2013Q4

REPORT INFORMATION
  Report Type: Report from Study
  Country: US (occurrence: US)
  Receive Date: 20121004
  Receipt Date: 20131223
  Transmission Date: 20140711
  Serious: Yes (Life-Threatening, Hospitalization, Other)
  Sender: FDA-Public Use
  Company Number: US-PFIZER INC-2011004178

PATIENT
  Age: 46 Year
  Sex: Male
  Weight: 75.28 kg

DRUGS (23)
  1. AXITINIB [Suspect]
     Indication: METASTATIC RENAL CELL CARCINOMA
     Dosage: 2 MG, 2X/DAY
     Route: 048
     Dates: start: 20091124, end: 20110105
  2. CITALOPRAM [Concomitant]
     Indication: DEPRESSION
     Dosage: UNK
     Dates: start: 20091229
  3. ATROPINE W/DIPHENOXYLATE [Concomitant]
     Indication: DIARRHOEA
     Dosage: UNK
     Dates: start: 20100422
  4. LOPERAMIDE HYDROCHLORIDE [Concomitant]
     Indication: DIARRHOEA
     Dosage: UNK
     Dates: start: 20100316
  5. LEVOTHYROXINE [Concomitant]
     Indication: HYPOTHYROIDISM
     Dosage: UNK
     Dates: start: 20100121
  6. LORAZEPAM [Concomitant]
     Indication: INSOMNIA
     Dosage: UNK
     Dates: start: 20100119
  7. LORAZEPAM [Concomitant]
     Indication: NAUSEA
  8. METHYLPHENIDATE [Concomitant]
     Indication: FATIGUE
     Dosage: UNK
     Dates: start: 20100216
  9. METOCLOPRAMIDE [Concomitant]
     Indication: NAUSEA
     Dosage: UNK
     Dates: start: 20100106
  10. ONDANSETRON HYDROCHLORIDE [Concomitant]
     Indication: NAUSEA
     Dosage: UNK
     Dates: start: 20091204
  11. ONDANSETRON HYDROCHLORIDE [Concomitant]
     Indication: VOMITING
  12. PANTOPRAZOLE [Concomitant]
     Indication: GASTROOESOPHAGEAL REFLUX DISEASE
     Dosage: UNK
     Dates: start: 20091111
  13. POLYETHYLENE GLYCOL [Concomitant]
     Indication: CONSTIPATION
     Dosage: UNK
     Dates: start: 20100928
  14. PROCHLORPERAZINE MALEATE [Concomitant]
     Indication: NAUSEA
     Dosage: UNK
     Dates: start: 20091127
  15. PROCHLORPERAZINE MALEATE [Concomitant]
     Indication: VOMITING
  16. RANITIDINE HYDROCHLORIDE [Concomitant]
     Indication: NAUSEA
     Dosage: UNK
     Dates: start: 20100105
  17. RANITIDINE HYDROCHLORIDE [Concomitant]
     Indication: ABDOMINAL DISCOMFORT
  18. ZOLPIDEM [Concomitant]
     Indication: INSOMNIA
     Dosage: UNK
     Dates: start: 20100403
  19. ACETAMINOPHEN [Concomitant]
     Indication: PAIN
     Dosage: UNK
     Dates: start: 20041116
  20. ACETAMINOPHEN/ASPIRIN/CAFFEINE [Concomitant]
     Indication: MIGRAINE
     Dosage: UNK
     Dates: start: 20100804
  21. DOCUSATE SODIUM [Concomitant]
     Indication: CONSTIPATION
     Dosage: UNK
     Dates: start: 20100928
  22. LORATADINE [Concomitant]
     Indication: RHINITIS
     Dosage: UNK
     Dates: start: 20091116
  23. OXYMETAZOLINE [Concomitant]
     Indication: RHINITIS
     Dosage: UNK
     Dates: start: 20091116

REACTIONS (2)
  - Neutrophil count abnormal [Recovered/Resolved]
  - Budd-Chiari syndrome [Unknown]
